FAERS Safety Report 5939568-2 (Version None)
Quarter: 2008Q4

REPORT INFORMATION
  Report Type: 
  Country: None (occurrence: None)
  Receive Date: 20081030
  Receipt Date: 20081024
  Transmission Date: 20090506
  Serious: Yes (Death, Hospitalization)
  Sender: FDA-Public Use
  Company Number: 2008-185888-NL

PATIENT
  Age: 76 Year
  Sex: Male

DRUGS (8)
  1. DEXAMETHASONE 0.5MG TAB [Suspect]
     Dosage: 8 MG ORAL
     Route: 048
     Dates: start: 20080501, end: 20080601
  2. PREDNISOLONE [Suspect]
     Dosage: 10 MG ORAL
     Route: 048
     Dates: start: 20080601
  3. DOCETAXEL [Suspect]
     Indication: PROSTATE CANCER
     Dosage: 50 MG/M2 INTRAVENOUS (NOS)
     Route: 042
     Dates: start: 20080101, end: 20080501
  4. ALLOPURINOL [Concomitant]
  5. MAGNESIUM SULFATE [Concomitant]
  6. MOVICOL [Concomitant]
  7. SOTALOL HCL [Concomitant]
  8. TAMSULOSIN HCL [Concomitant]

REACTIONS (12)
  - APPENDICITIS [None]
  - ARRHYTHMIA [None]
  - CONSTIPATION [None]
  - HYPOTENSION [None]
  - ILEUS [None]
  - INTESTINAL PERFORATION [None]
  - NEUTROPENIA [None]
  - NEUTROPENIC SEPSIS [None]
  - NO THERAPEUTIC RESPONSE [None]
  - RENAL FAILURE ACUTE [None]
  - SEPSIS [None]
  - URINARY RETENTION [None]
